FAERS Safety Report 6289040-8 (Version None)
Quarter: 2009Q3

REPORT INFORMATION
  Report Type: 
  Country: None (occurrence: None)
  Receive Date: 20090727
  Receipt Date: 20090713
  Transmission Date: 20100115
  Serious: Yes (Hospitalization)
  Sender: FDA-Public Use
  Company Number: ADR11122009

PATIENT
  Age: 43 Year
  Sex: Female

DRUGS (1)
  1. METFORMIN HCL [Suspect]
     Indication: TYPE 2 DIABETES MELLITUS
     Dosage: 500 MG TWICE/D

REACTIONS (12)
  - BLOOD PRESSURE DECREASED [None]
  - BLOOD PRESSURE DIASTOLIC DECREASED [None]
  - GLYCOSYLATED HAEMOGLOBIN INCREASED [None]
  - HAEMODIALYSIS [None]
  - HEART RATE INCREASED [None]
  - HYPERKALAEMIA [None]
  - HYPOGLYCAEMIA [None]
  - HYPOTHERMIA [None]
  - INCORRECT DOSE ADMINISTERED [None]
  - LACTIC ACIDOSIS [None]
  - SUICIDE ATTEMPT [None]
  - TACHYCARDIA [None]
